FAERS Safety Report 11330283 (Version 1)
Quarter: 2015Q3

REPORT INFORMATION
  Report Type: Spontaneous
  Country: IT (occurrence: IT)
  Receive Date: 20150803
  Receipt Date: 20150803
  Transmission Date: 20151125
  Serious: Yes (Hospitalization)
  Sender: FDA-Public Use
  Company Number: IT-PFIZER INC-2015254316

PATIENT
  Age: 69 Year
  Sex: Female

DRUGS (3)
  1. LEXOTAN [Suspect]
     Active Substance: BROMAZEPAM
     Dosage: 50 GTT, TOTAL
     Route: 048
     Dates: start: 20150620, end: 20150620
  2. ZOLOFT [Suspect]
     Active Substance: SERTRALINE HYDROCHLORIDE
     Dosage: 500 MG, TOTAL
     Route: 048
     Dates: start: 20150620, end: 20150620
  3. TAVOR [Suspect]
     Active Substance: LORAZEPAM
     Dosage: 4 MG, TOTAL
     Route: 048
     Dates: start: 20150620, end: 20150620

REACTIONS (2)
  - Drug abuse [Recovered/Resolved]
  - Sopor [Recovered/Resolved]

NARRATIVE: CASE EVENT DATE: 20150620
